FAERS Safety Report 17485517 (Version 2)
Quarter: 2020Q2

REPORT INFORMATION
  Report Type: Spontaneous
  Country: US (occurrence: US)
  Receive Date: 20200302
  Receipt Date: 20200625
  Transmission Date: 20200713
  Serious: No
  Sender: FDA-Public Use
  Company Number: US-SA-2020SA049494

PATIENT

DRUGS (7)
  1. DUPIXENT [Suspect]
     Active Substance: DUPILUMAB
     Indication: ASTHMA
     Dosage: 300 MG, QOW
     Route: 058
     Dates: start: 20190205
  2. MONTELUKAST [Concomitant]
     Active Substance: MONTELUKAST SODIUM
  3. VENTOLIN [Concomitant]
     Active Substance: ALBUTEROL SULFATE
     Dosage: UNK
     Route: 065
  4. TRIAMCINOLONE [Concomitant]
     Active Substance: TRIAMCINOLONE
     Dosage: UNK
     Route: 065
  5. CLOBETASOL [Concomitant]
     Active Substance: CLOBETASOL
  6. FLUTICASONE. [Concomitant]
     Active Substance: FLUTICASONE
  7. ZOLPIDEM [Concomitant]
     Active Substance: ZOLPIDEM TARTRATE

REACTIONS (4)
  - Nasal congestion [Not Recovered/Not Resolved]
  - Asthma [Not Recovered/Not Resolved]
  - Paranasal sinus hyposecretion [Not Recovered/Not Resolved]
  - Cough [Not Recovered/Not Resolved]
